FAERS Safety Report 24254008 (Version 1)
Quarter: 2024Q3

REPORT INFORMATION
  Report Type: Spontaneous
  Country: CA (occurrence: CA)
  Receive Date: 20240827
  Receipt Date: 20240827
  Transmission Date: 20241017
  Serious: Yes (Other)
  Sender: TEVA
  Company Number: CA-TEVA-VS-3235022

PATIENT
  Age: 35 Year
  Sex: Female

DRUGS (22)
  1. METHOTREXATE [Suspect]
     Active Substance: METHOTREXATE
     Indication: Product used for unknown indication
     Route: 065
  2. METHOTREXATE [Suspect]
     Active Substance: METHOTREXATE
     Indication: Product used for unknown indication
     Route: 065
  3. METHOTREXATE [Suspect]
     Active Substance: METHOTREXATE
     Indication: Product used for unknown indication
     Dosage: DESCRIPTION: METHOTREXATE INJECTION, USP, DOSE FORM: SOLUTION INTRA- ARTERIAL
     Route: 065
  4. METHOTREXATE [Suspect]
     Active Substance: METHOTREXATE
     Indication: Product used for unknown indication
     Dosage: DESCRIPTION: METHOTREXATE INJECTION, USP
     Route: 065
  5. CRISABOROLE [Suspect]
     Active Substance: CRISABOROLE
     Indication: Dermatitis atopic
     Route: 065
  6. CRISABOROLE [Suspect]
     Active Substance: CRISABOROLE
     Indication: Dermatitis atopic
     Route: 065
  7. CRISABOROLE [Suspect]
     Active Substance: CRISABOROLE
     Indication: Dermatitis atopic
     Route: 065
  8. PARAFFIN [Concomitant]
     Active Substance: PARAFFIN
     Indication: Cheilitis
     Route: 065
  9. HYDROCORTISONE [Suspect]
     Active Substance: HYDROCORTISONE\HYDROCORTISONE ACETATE
     Indication: Cheilitis
     Route: 065
  10. DAPSONE [Suspect]
     Active Substance: DAPSONE
     Indication: Cheilitis
     Route: 065
  11. DAPSONE [Suspect]
     Active Substance: DAPSONE
     Indication: Cheilitis
     Route: 065
  12. TACROLIMUS [Suspect]
     Active Substance: TACROLIMUS
     Indication: Prophylaxis
     Route: 065
  13. TACROLIMUS [Suspect]
     Active Substance: TACROLIMUS
     Indication: Prophylaxis
     Route: 065
  14. TACROLIMUS [Suspect]
     Active Substance: TACROLIMUS
     Indication: Prophylaxis
     Route: 061
  15. TACROLIMUS [Suspect]
     Active Substance: TACROLIMUS
     Indication: Prophylaxis
     Route: 065
  16. DOXYCYCLINE [Suspect]
     Active Substance: DOXYCYCLINE\DOXYCYCLINE HYCLATE
     Indication: Cheilitis
     Route: 065
  17. VALACYCLOVIR HYDROCHLORIDE [Concomitant]
     Active Substance: VALACYCLOVIR HYDROCHLORIDE
     Indication: Prophylaxis
     Route: 065
  18. DUPILUMAB [Suspect]
     Active Substance: DUPILUMAB
     Indication: Cheilitis
     Route: 065
  19. DUPILUMAB [Suspect]
     Active Substance: DUPILUMAB
     Indication: Cheilitis
     Route: 065
  20. ISOTRETINOIN [Suspect]
     Active Substance: ISOTRETINOIN
     Indication: Oral pustule
     Route: 065
  21. ISOTRETINOIN [Suspect]
     Active Substance: ISOTRETINOIN
     Indication: Oral pustule
     Route: 065
  22. HYDROCORTISONE VALERATE [Concomitant]
     Active Substance: HYDROCORTISONE VALERATE
     Indication: Cheilitis
     Route: 065

REACTIONS (7)
  - Eyelid irritation [Recovered/Resolved]
  - Drug ineffective [Recovered/Resolved]
  - Therapeutic product ineffective [Recovered/Resolved]
  - Cheilitis [Recovered/Resolved]
  - Condition aggravated [Recovered/Resolved]
  - Off label use [Recovered/Resolved]
  - Dermatitis [Recovered/Resolved]
